FAERS Safety Report 7892968 (Version 4)
Quarter: 2012Q4

REPORT INFORMATION
  Report Type: 
  Country: GB (occurrence: GB)
  Receive Date: 20110411
  Receipt Date: 20120905
  Transmission Date: 20130627
  Serious: Yes (Other)
  Sender: FDA-Public Use
  Company Number: GB-US-EMD SERONO, INC.-7020173

PATIENT
  Age: 58 None
  Sex: Female

DRUGS (2)
  1. REBIF [Suspect]
     Indication: PRODUCT USED FOR UNKNOWN INDICATION
     Route: 058
  2. REBIF [Suspect]
     Route: 058
     Dates: start: 201004

REACTIONS (7)
  - Diabetes mellitus [Unknown]
  - Feeling hot [Not Recovered/Not Resolved]
  - Injection site infection [Unknown]
  - Injection site pruritus [Unknown]
  - Injection site mass [Unknown]
  - Injection site macule [Not Recovered/Not Resolved]
  - Injection site warmth [Not Recovered/Not Resolved]
